FAERS Safety Report 7246479-1 (Version None)
Quarter: 2011Q1

REPORT INFORMATION
  Report Type: 
  Country: None (occurrence: None)
  Receive Date: 20110126
  Receipt Date: 20110118
  Transmission Date: 20110831
  Serious: Yes (Other)
  Sender: FDA-Public Use
  Company Number: AU-GILEAD-2011-0035444

PATIENT
  Sex: Male
  Weight: 91.5 kg

DRUGS (7)
  1. ASPIRIN [Concomitant]
  2. AMBRISENTAN [Suspect]
     Route: 048
     Dates: start: 20091111, end: 20091125
  3. ATORVASTATIN CALCIUM [Concomitant]
  4. AMBRISENTAN [Suspect]
     Indication: IDIOPATHIC PULMONARY FIBROSIS
     Route: 048
     Dates: start: 20091126, end: 20101223
  5. TELMISARTAN [Concomitant]
  6. PANADOL OSTEO [Concomitant]
  7. OXYGEN [Concomitant]

REACTIONS (1)
  - ELECTROCARDIOGRAM T WAVE INVERSION [None]
